FAERS Safety Report 8090940 (Version 6)
Quarter: 2013Q3

REPORT INFORMATION
  Report Type: Spontaneous
  Country: US (occurrence: US)
  Receive Date: 20110816
  Receipt Date: 20130711
  Transmission Date: 20140515
  Serious: Yes (Hospitalization)
  Sender: FDA-Public Use
  Company Number: US-BIOGENIDEC-2011BI030587

PATIENT
  Age: 52 Year
  Sex: Female

DRUGS (8)
  1. TYSABRI [Suspect]
     Indication: MULTIPLE SCLEROSIS
     Route: 042
     Dates: start: 20081016, end: 20130410
  2. AMPYRA [Concomitant]
     Route: 048
  3. BACLOFEN [Concomitant]
     Indication: MULTIPLE SCLEROSIS
     Route: 048
  4. LEXAPRO [Concomitant]
     Indication: DEPRESSION
     Route: 048
  5. OXYBUTYNIN [Concomitant]
     Route: 048
  6. CALCIUM WITH VITAMIN D [Concomitant]
     Indication: MULTIPLE SCLEROSIS
     Route: 048
  7. CALCIUM WITH VITAMIN D [Concomitant]
     Indication: NEUROGENIC BLADDER
     Route: 048
  8. CALCIUM WITH VITAMIN D [Concomitant]
     Indication: GAIT DISTURBANCE
     Route: 048

REACTIONS (2)
  - Cytomegalovirus hepatitis [Recovered/Resolved]
  - Fatigue [Not Recovered/Not Resolved]
